FAERS Safety Report 5260766-8 (Version None)
Quarter: 2007Q1

REPORT INFORMATION
  Report Type: 
  Country: None (occurrence: None)
  Receive Date: 20070309
  Receipt Date: 20070227
  Transmission Date: 20070707
  Serious: Yes (Hospitalization)
  Sender: FDA-Public Use
  Company Number: JP-MERCK-0703USA00344

PATIENT
  Age: 34 Year
  Sex: Female

DRUGS (10)
  1. PRIMAXIN [Suspect]
     Indication: PNEUMONIA STAPHYLOCOCCAL
     Route: 042
     Dates: start: 20030701, end: 20030701
  2. PRIMAXIN [Suspect]
     Route: 042
     Dates: start: 20030801, end: 20030901
  3. CEFTAZIDIME [Concomitant]
     Indication: OPPORTUNISTIC INFECTION
     Route: 051
     Dates: start: 20030601, end: 20030701
  4. ISEPAMICIN SULFATE [Concomitant]
     Indication: OPPORTUNISTIC INFECTION
     Route: 051
     Dates: start: 20030601, end: 20030701
  5. MEROPENEM [Concomitant]
     Route: 041
     Dates: start: 20030701, end: 20030701
  6. FLUCONAZOLE [Concomitant]
     Route: 065
     Dates: start: 20030601, end: 20030801
  7. ITRACONAZOLE [Concomitant]
     Indication: BRONCHOPULMONARY ASPERGILLOSIS
     Route: 048
     Dates: start: 20030801, end: 20030801
  8. ITRACONAZOLE [Concomitant]
     Route: 048
     Dates: start: 20030901
  9. MICAFUNGIN SODIUM [Concomitant]
     Indication: BRONCHOPULMONARY ASPERGILLOSIS
     Route: 041
     Dates: start: 20030901, end: 20031101
  10. TARGOCID [Concomitant]
     Route: 041
     Dates: start: 20030701, end: 20030701

REACTIONS (3)
  - BRONCHOPULMONARY ASPERGILLOSIS [None]
  - DRUG RESISTANCE [None]
  - PNEUMONIA [None]
